FAERS Safety Report 25145499 (Version 1)
Quarter: 2025Q2

REPORT INFORMATION
  Report Type: Spontaneous
  Country: US (occurrence: US)
  Receive Date: 20250401
  Receipt Date: 20250401
  Transmission Date: 20250716
  Serious: Yes (Death, Other)
  Sender: PFIZER
  Company Number: US-PFIZER INC-202500066191

PATIENT
  Age: 28 Year
  Sex: Male

DRUGS (6)
  1. KETAMINE HYDROCHLORIDE [Suspect]
     Active Substance: KETAMINE HYDROCHLORIDE
  2. COCAINE [Suspect]
     Active Substance: COCAINE
  3. MIDOMAFETAMINE [Suspect]
     Active Substance: MIDOMAFETAMINE
  4. TENAMFETAMINE [Suspect]
     Active Substance: TENAMFETAMINE
  5. LORATADINE [Suspect]
     Active Substance: LORATADINE
  6. CAFFEINE [Suspect]
     Active Substance: CAFFEINE

REACTIONS (4)
  - Toxicity to various agents [Fatal]
  - Abnormal behaviour [Fatal]
  - Fall [Fatal]
  - Injury [Fatal]
